FAERS Safety Report 8071439-0 (Version None)
Quarter: 2012Q1

REPORT INFORMATION
  Report Type: 
  Country: None (occurrence: None)
  Receive Date: 20120125
  Receipt Date: 20120123
  Transmission Date: 20120608
  Serious: Yes (Death)
  Sender: FDA-Public Use
  Company Number: US-ABBOTT-12P-163-0896162-00

PATIENT
  Sex: Male

DRUGS (4)
  1. HUMIRA [Suspect]
     Indication: CROHN'S DISEASE
     Dosage: PER INSTRUCTIONS PROVIDED
  2. IMURAN [Suspect]
     Indication: CROHN'S DISEASE
     Dosage: VARIOUS TIMES
     Dates: start: 20080601
  3. UNKNOWN PRESCRIPTION MEDICATIONS [Concomitant]
     Indication: CROHN'S DISEASE
  4. REMICADE [Suspect]
     Indication: CROHN'S DISEASE
     Dosage: PER PHYSICIAN'S INSTRUCTIONS
     Route: 042

REACTIONS (2)
  - ACUTE MYELOID LEUKAEMIA [None]
  - HAEMATOLOGICAL MALIGNANCY [None]
